FAERS Safety Report 6989627-0 (Version None)
Quarter: 2010Q3

REPORT INFORMATION
  Report Type: 
  Country: None (occurrence: None)
  Receive Date: 20100916
  Receipt Date: 20100201
  Transmission Date: 20110219
  Serious: Yes (Other)
  Sender: FDA-Public Use
  Company Number: US-PFIZER INC-2010014221

PATIENT
  Sex: Female
  Weight: 89.796 kg

DRUGS (12)
  1. NEURONTIN [Suspect]
     Indication: FIBROMYALGIA
     Dosage: 800 MG, 3X/DAY
     Route: 048
     Dates: start: 20060101
  2. LYRICA [Suspect]
     Indication: FIBROMYALGIA
     Dosage: UNK
     Route: 048
     Dates: start: 20080601, end: 20090601
  3. SYNTHROID [Concomitant]
     Indication: THYROID DISORDER
     Dosage: UNK
  4. TIZANIDINE HCL [Concomitant]
     Indication: MUSCLE RELAXANT THERAPY
     Dosage: UNK
  5. AMBIEN [Concomitant]
     Dosage: UNK
  6. HYDROCODONE [Concomitant]
     Dosage: UNK
  7. LOTENSIN [Concomitant]
     Indication: HYPERTENSION
     Dosage: UNK
  8. FEXOFENADINE HCL [Concomitant]
     Indication: HYPERSENSITIVITY
     Dosage: UNK
  9. PROTONIX [Concomitant]
     Indication: GASTROOESOPHAGEAL REFLUX DISEASE
     Dosage: UNK
  10. ACETAZOLAMIDE [Concomitant]
     Indication: EAR DISCOMFORT
     Dosage: UNK
  11. MILNACIPRAN [Concomitant]
     Dosage: UNK
  12. LEXAPRO [Concomitant]
     Dosage: UNK

REACTIONS (4)
  - ACTIVITIES OF DAILY LIVING IMPAIRED [None]
  - FATIGUE [None]
  - IMPAIRED DRIVING ABILITY [None]
  - STUPOR [None]
